FAERS Safety Report 8480693-2 (Version None)
Quarter: 2012Q3

REPORT INFORMATION
  Report Type: 
  Country: None (occurrence: None)
  Receive Date: 20120702
  Receipt Date: 20120626
  Transmission Date: 20120928
  Serious: No
  Sender: FDA-Public Use
  Company Number: US-PFIZER INC-2012141413

PATIENT
  Sex: Male
  Weight: 79.365 kg

DRUGS (2)
  1. FLECTOR [Suspect]
     Indication: MENISCUS LESION
     Dosage: UNK
     Route: 062
     Dates: start: 20120601, end: 20120601
  2. LEXAPRO [Concomitant]
     Dosage: 20 MG, DAILY

REACTIONS (1)
  - DRUG INEFFECTIVE [None]
